FAERS Safety Report 13197810 (Version 16)
Quarter: 2019Q3

REPORT INFORMATION
  Report Type: Spontaneous
  Country: US (occurrence: US)
  Receive Date: 20170208
  Receipt Date: 20190904
  Transmission Date: 20191004
  Serious: Yes (Hospitalization, Other)
  Sender: FDA-Public Use
  Company Number: US-PFIZER INC-2017056060

PATIENT
  Age: 42 Year
  Sex: Male

DRUGS (43)
  1. DILANTIN [Suspect]
     Active Substance: PHENYTOIN
     Dosage: 100 MG, UNK (DOSE AND FREQUENCY VARIED AS TITRATED)
     Dates: start: 20170119, end: 20180804
  2. DILANTIN [Suspect]
     Active Substance: PHENYTOIN
     Indication: SEIZURE
     Dosage: 400 MG, SINGLE
     Route: 048
     Dates: start: 20130331, end: 20130331
  3. DILANTIN [Suspect]
     Active Substance: PHENYTOIN
     Dosage: 400 MG, SINGLE
     Route: 048
     Dates: start: 20130331, end: 20130331
  4. KEPPRA [Concomitant]
     Active Substance: LEVETIRACETAM
     Dosage: 500 MG, UNK (DOSAGE AND FREQUENCY VARIED AS TITRATED)
     Dates: start: 20161116, end: 20170103
  5. BUPROPION HCL [Concomitant]
     Active Substance: BUPROPION HYDROCHLORIDE
     Dosage: 100 MG, 1X/DAY
     Route: 048
  6. LEVETIRACETAM. [Concomitant]
     Active Substance: LEVETIRACETAM
     Dosage: 750 MG, UNK (4 WEEKS)
     Route: 048
  7. PROAIR HFA [Concomitant]
     Active Substance: ALBUTEROL SULFATE
     Dosage: UNK, AS NEEDED
  8. ZIAC [Concomitant]
     Active Substance: BISOPROLOL FUMARATE\HYDROCHLOROTHIAZIDE
     Dosage: 10 TO 6.25 MG, DAILY FOR 1 MONTH (30 DAYS)
     Route: 048
  9. ROPINIROLE. [Concomitant]
     Active Substance: ROPINIROLE
     Dosage: 1 MG, DAILY (AT BEDTIME)
  10. DILANTIN [Suspect]
     Active Substance: PHENYTOIN
     Dosage: 100 MG, (5 TIMES DAILY FOR 30 DAYS) UNK
  11. PHENYTOIN. [Suspect]
     Active Substance: PHENYTOIN
     Indication: SEIZURE
     Dosage: 100 MG, UNK
     Dates: start: 20000320, end: 20041124
  12. KEPPRA [Concomitant]
     Active Substance: LEVETIRACETAM
     Dosage: UNK
     Dates: start: 2016
  13. ZOFRAN [Concomitant]
     Active Substance: ONDANSETRON HYDROCHLORIDE
     Dosage: 4 MG, UNK
     Route: 042
  14. DILANTIN [Suspect]
     Active Substance: PHENYTOIN
     Indication: PETIT MAL EPILEPSY
  15. KEPPRA [Concomitant]
     Active Substance: LEVETIRACETAM
     Dosage: 2 DF, UNK
     Route: 048
     Dates: start: 20161116
  16. KEPPRA [Concomitant]
     Active Substance: LEVETIRACETAM
     Dosage: 1000 MG, 3X/DAY
     Route: 048
  17. DIAZEPAM. [Concomitant]
     Active Substance: DIAZEPAM
     Indication: ANXIETY DISORDER
     Dosage: 10 MG, 2X/DAY
     Route: 048
  18. HYDROXYUREA. [Concomitant]
     Active Substance: HYDROXYUREA
     Dosage: 500 MG, DAILY (1 PILL)
     Route: 048
  19. LEVETIRACETAM. [Concomitant]
     Active Substance: LEVETIRACETAM
     Dosage: 500 MG, 2X/DAY (FOR TWO WEEKS)
     Route: 048
  20. DEXILANT [Concomitant]
     Active Substance: DEXLANSOPRAZOLE
     Dosage: 60 MG, DAILY FOR 1 MONTH (30 DAYS)
  21. DILANTIN [Suspect]
     Active Substance: PHENYTOIN
     Indication: SEIZURE
     Dosage: 5 DF, UNK
     Route: 048
     Dates: start: 20161116
  22. DILANTIN [Suspect]
     Active Substance: PHENYTOIN
     Indication: PETIT MAL EPILEPSY
     Dosage: 100 MG, UNK
     Dates: start: 1996, end: 19991204
  23. POTASSIUM [Concomitant]
     Active Substance: POTASSIUM
     Dosage: 10 MEQ, DAILY
  24. DILANTIN [Suspect]
     Active Substance: PHENYTOIN
     Indication: FOCAL DYSCOGNITIVE SEIZURES
  25. DILANTIN [Suspect]
     Active Substance: PHENYTOIN
     Indication: GENERALISED TONIC-CLONIC SEIZURE
     Dosage: 100 MG, 3X/DAY
     Route: 048
     Dates: start: 19990825
  26. ATIVAN [Concomitant]
     Active Substance: LORAZEPAM
     Dosage: 0.5 ML, UNK
     Route: 042
     Dates: start: 20161116
  27. OXYCODONE-ACETAMINOPHEN [Concomitant]
     Active Substance: ACETAMINOPHEN\OXYCODONE HYDROCHLORIDE
     Dosage: UNK
  28. DILANTIN [Suspect]
     Active Substance: PHENYTOIN
     Indication: SEIZURE
  29. DILANTIN [Suspect]
     Active Substance: PHENYTOIN
     Dosage: 400 MG, SINGLE (IV SLOW PUSH OVER 30 MINS AT 50 MG/MIN)
     Dates: start: 20130331, end: 20130331
  30. KEPPRA [Concomitant]
     Active Substance: LEVETIRACETAM
     Dosage: 1000 MG, 2X/DAY
  31. HYDROXYUREA. [Concomitant]
     Active Substance: HYDROXYUREA
     Dosage: 500 MG, 2X/DAY
  32. XANAX [Concomitant]
     Active Substance: ALPRAZOLAM
     Dosage: UNK, AS NEEDED
  33. ALLOPURINOL. [Concomitant]
     Active Substance: ALLOPURINOL
     Dosage: UNK
  34. DILANTIN [Suspect]
     Active Substance: PHENYTOIN
     Dosage: 100 MG, 1 CAPSULE AT 8 AM, 2 CAPSULES AT 12 PM, 1 AT 4 PM, 2 AT 8 PM, AND 1 AT 11 PM
     Dates: start: 20150205, end: 20160302
  35. KEPPRA [Concomitant]
     Active Substance: LEVETIRACETAM
     Indication: SEIZURE
     Dosage: UNK
     Dates: start: 2015
  36. KEPPRA [Concomitant]
     Active Substance: LEVETIRACETAM
     Dosage: 750 MG, 2X/DAY
  37. VALIUM [Concomitant]
     Active Substance: DIAZEPAM
     Dosage: 10 MG, UNK
  38. LEVETIRACETAM. [Concomitant]
     Active Substance: LEVETIRACETAM
     Dosage: 1000 MG, 2X/DAY (30 DAYS)
     Route: 048
  39. DILANTIN [Suspect]
     Active Substance: PHENYTOIN
     Indication: GENERALISED TONIC-CLONIC SEIZURE
     Dosage: UNK
     Route: 048
  40. DILANTIN [Suspect]
     Active Substance: PHENYTOIN
     Indication: FOCAL DYSCOGNITIVE SEIZURES
     Dosage: 400 MG, 1X/DAY (AT BEDTIME)
     Route: 048
  41. DILANTIN [Suspect]
     Active Substance: PHENYTOIN
     Dosage: 100 MG, (7 TIMES DAILY) UNK
     Route: 048
  42. LYRICA [Concomitant]
     Active Substance: PREGABALIN
     Dosage: 100 MG, 3X/DAY
     Route: 048
  43. KLOR-CON M10 [Concomitant]
     Active Substance: POTASSIUM CHLORIDE
     Dosage: 10 MEQ, DAILY
     Route: 048

REACTIONS (26)
  - Neuropathy peripheral [Not Recovered/Not Resolved]
  - Cerebellar atrophy [Not Recovered/Not Resolved]
  - Cerebral atrophy [Not Recovered/Not Resolved]
  - Memory impairment [Unknown]
  - Speech disorder [Not Recovered/Not Resolved]
  - Fatigue [Not Recovered/Not Resolved]
  - Impaired driving ability [Unknown]
  - Intervertebral disc degeneration [Unknown]
  - Fall [Not Recovered/Not Resolved]
  - Balance disorder [Not Recovered/Not Resolved]
  - Coordination abnormal [Not Recovered/Not Resolved]
  - Muscular weakness [Not Recovered/Not Resolved]
  - Limb injury [Unknown]
  - Ataxia [Not Recovered/Not Resolved]
  - Head discomfort [Unknown]
  - Loss of personal independence in daily activities [Unknown]
  - Tremor [Not Recovered/Not Resolved]
  - Depression [Not Recovered/Not Resolved]
  - Hand fracture [Not Recovered/Not Resolved]
  - Amnesia [Not Recovered/Not Resolved]
  - Muscle spasms [Unknown]
  - Dizziness [Not Recovered/Not Resolved]
  - Encephalomalacia [Unknown]
  - Headache [Not Recovered/Not Resolved]
  - Hypoaesthesia [Not Recovered/Not Resolved]
  - Gait disturbance [Not Recovered/Not Resolved]

NARRATIVE: CASE EVENT DATE: 20060522
